FAERS Safety Report 4776017-4 (Version None)
Quarter: 2005Q3

REPORT INFORMATION
  Report Type: 
  Country: None (occurrence: None)
  Receive Date: 20050922
  Receipt Date: 20050912
  Transmission Date: 20060218
  Serious: Yes (Life-Threatening, Hospitalization, Other)
  Sender: FDA-Public Use
  Company Number: DE-JNJFOC-20050801159

PATIENT
  Sex: Male
  Weight: 80 kg

DRUGS (10)
  1. HALOPERIDOL DECANOATE [Suspect]
     Route: 030
  2. HALDOL [Suspect]
     Route: 048
  3. BENZODIAZEPINES [Suspect]
     Indication: SCHIZOPHRENIA
     Dosage: REPORTEDLY, TREATMENT WITH ONE BENZODIAZEPINE WAS ONGOING.
     Route: 065
  4. LOW POTENT NEUROLEPTICS [Suspect]
     Indication: SCHIZOPHRENIA
     Route: 065
  5. TREMARIT [Suspect]
     Route: 048
  6. TREMARIT [Suspect]
     Indication: TREMOR
     Route: 048
  7. DIPIPERON [Concomitant]
     Route: 048
  8. DIPIPERON [Concomitant]
     Route: 048
  9. DIPIPERON [Concomitant]
     Route: 048
  10. DIPIPERON [Concomitant]
     Route: 048

REACTIONS (4)
  - NEUROLEPTIC MALIGNANT SYNDROME [None]
  - PROTHROMBIN TIME SHORTENED [None]
  - QUADRIPARESIS [None]
  - THROMBOCYTOPENIA [None]
